FAERS Safety Report 25545182 (Version 1)
Quarter: 2025Q3

REPORT INFORMATION
  Report Type: Spontaneous
  Country: US (occurrence: None)
  Receive Date: 20250711
  Receipt Date: 20250711
  Transmission Date: 20251021
  Serious: Yes (unspecified)
  Sender: FDA-CTU
  Company Number: None

PATIENT
  Age: 33 Year
  Sex: Male
  Weight: 101.6 kg

DRUGS (1)
  1. DUPIXENT [Suspect]
     Active Substance: DUPILUMAB
     Indication: Asthma
     Route: 058
     Dates: start: 20250619, end: 20250619

REACTIONS (4)
  - Ocular hyperaemia [None]
  - Ocular hyperaemia [None]
  - Dry eye [None]
  - Eye irritation [None]

NARRATIVE: CASE EVENT DATE: 20250620
